FAERS Safety Report 23898244 (Version 1)
Quarter: 2024Q2

REPORT INFORMATION
  Report Type: Report from Study
  Country: CN (occurrence: CN)
  Receive Date: 20240524
  Receipt Date: 20240524
  Transmission Date: 20240716
  Serious: Yes (Other)
  Sender: FDA-Public Use
  Company Number: CN-Merck Healthcare KGaA-2024027296

PATIENT
  Age: 63 Year
  Sex: Male

DRUGS (12)
  1. CETUXIMAB [Suspect]
     Active Substance: CETUXIMAB
     Indication: Adenocarcinoma of colon
     Dosage: UNK UNK, UNKNOWN
     Route: 065
     Dates: start: 20200929, end: 20210121
  2. CETUXIMAB [Suspect]
     Active Substance: CETUXIMAB
     Dosage: UNK UNK, UNKNOWN
     Route: 065
  3. CETUXIMAB [Suspect]
     Active Substance: CETUXIMAB
     Dosage: UNK UNK, UNKNOWN
     Route: 065
     Dates: start: 202310, end: 202403
  4. FLUOROURACIL [Suspect]
     Active Substance: FLUOROURACIL
     Indication: Adenocarcinoma of colon
     Dosage: UNK UNK, UNKNOWN
     Route: 065
     Dates: start: 20200929, end: 20210121
  5. FLUOROURACIL [Suspect]
     Active Substance: FLUOROURACIL
     Dosage: UNK UNK, UNKNOWN
     Route: 065
  6. FLUOROURACIL [Suspect]
     Active Substance: FLUOROURACIL
     Dosage: UNK UNK, UNKNOWN
     Route: 065
     Dates: start: 202310, end: 202403
  7. LEUCOVORIN [Suspect]
     Active Substance: LEUCOVORIN\LEUCOVORIN CALCIUM
     Indication: Adenocarcinoma of colon
     Dosage: UNK UNK, UNKNOWN
     Route: 065
     Dates: start: 20200929, end: 20210121
  8. LEUCOVORIN [Suspect]
     Active Substance: LEUCOVORIN\LEUCOVORIN CALCIUM
     Dosage: UNK UNK, UNKNOWN
     Route: 065
  9. LEUCOVORIN [Suspect]
     Active Substance: LEUCOVORIN\LEUCOVORIN CALCIUM
     Dosage: UNK UNK, UNKNOWN
     Route: 065
     Dates: start: 202310, end: 202403
  10. OXALIPLATIN [Suspect]
     Active Substance: OXALIPLATIN
     Indication: Adenocarcinoma of colon
     Dosage: UNK UNK, UNKNOWN
     Route: 065
     Dates: start: 20200929, end: 20210121
  11. OXALIPLATIN [Suspect]
     Active Substance: OXALIPLATIN
     Dosage: UNK UNK, UNKNOWN
     Route: 065
  12. OXALIPLATIN [Suspect]
     Active Substance: OXALIPLATIN
     Dosage: UNK UNK, UNKNOWN
     Route: 065
     Dates: start: 202310, end: 202403

REACTIONS (4)
  - Biopsy peritoneum [Unknown]
  - Laparotomy [Unknown]
  - Granulocyte count decreased [Unknown]
  - Stomatitis [Unknown]

NARRATIVE: CASE EVENT DATE: 20240301
